FAERS Safety Report 25806906 (Version 1)
Quarter: 2025Q3

REPORT INFORMATION
  Report Type: Spontaneous
  Country: US (occurrence: US)
  Receive Date: 20250916
  Receipt Date: 20250916
  Transmission Date: 20251021
  Serious: No
  Sender: BRAEBURN PHARMACEUTICALS
  Company Number: US-BRAEBURN PHARMACEUTICALS-US-BRA-25-000476

PATIENT
  Sex: Female
  Weight: 60.317 kg

DRUGS (2)
  1. BRIXADI [Suspect]
     Active Substance: BUPRENORPHINE
     Indication: Drug dependence
     Dosage: UNK, MONTHLY
     Route: 065
  2. BRIXADI [Suspect]
     Active Substance: BUPRENORPHINE
     Dosage: 16 MILLIGRAM, QW
     Route: 065
     Dates: start: 202501

REACTIONS (4)
  - Injection site inflammation [Unknown]
  - Injection site mass [Unknown]
  - Injection site pain [Unknown]
  - Injection site reaction [Unknown]

NARRATIVE: CASE EVENT DATE: 20250101
